FAERS Safety Report 17520918 (Version 1)
Quarter: 2020Q1

REPORT INFORMATION
  Report Type: Report from Study
  Country: US (occurrence: US)
  Receive Date: 20200310
  Receipt Date: 20200310
  Transmission Date: 20200409
  Serious: Yes (Death, Hospitalization)
  Sender: FDA-Public Use
  Company Number: US-ADAMAS PHARMA, LLC-2019ADA03002

PATIENT
  Age: 88 Year
  Sex: Female

DRUGS (20)
  1. ZYRTEC [Concomitant]
     Active Substance: CETIRIZINE HYDROCHLORIDE
  2. VITAMIN D3 [Concomitant]
     Active Substance: CHOLECALCIFEROL
  3. INDERAL [Concomitant]
     Active Substance: PROPRANOLOL HYDROCHLORIDE
  4. MAXZIDE-25 [Concomitant]
     Active Substance: HYDROCHLOROTHIAZIDE\TRIAMTERENE
  5. NIZORAL [Concomitant]
     Active Substance: KETOCONAZOLE
  6. CLOBETASOL [Concomitant]
     Active Substance: CLOBETASOL
     Dosage: UNK, 3X/WEEK TO AFFECTED AREA (TUES/THURS/FRI)
     Route: 061
  7. ASPIRIN. [Concomitant]
     Active Substance: ASPIRIN
  8. KLOR-CON [Concomitant]
     Active Substance: POTASSIUM CHLORIDE
  9. SINEMET [Concomitant]
     Active Substance: CARBIDOPA\LEVODOPA
     Dosage: 1.5 TABLETS, 3X/DAY (9 AM, 12 PM, 5 PM)
     Route: 048
  10. PLENDIL [Concomitant]
     Active Substance: FELODIPINE
  11. REQUIP [Concomitant]
     Active Substance: ROPINIROLE HYDROCHLORIDE
  12. KENALOG [Concomitant]
     Active Substance: TRIAMCINOLONE ACETONIDE
  13. ACIPHEX [Concomitant]
     Active Substance: RABEPRAZOLE SODIUM
  14. CELEXA [Concomitant]
     Active Substance: CITALOPRAM HYDROBROMIDE
     Dosage: 40 MG, 1X/DAY
     Route: 048
  15. COLACE [Concomitant]
     Active Substance: DOCUSATE SODIUM
  16. K-DUR [Concomitant]
     Active Substance: POTASSIUM CHLORIDE
  17. GOCOVRI [Suspect]
     Active Substance: AMANTADINE
     Indication: DYSKINESIA
     Dosage: 68.5 MG, 1X/DAY, AT BEDTIME
     Route: 048
     Dates: start: 20191105
  18. TYLENOL [Concomitant]
     Active Substance: ACETAMINOPHEN
     Dosage: 1000 MG, EVERY 8 HOURS AS NEEDED FOR PAIN
  19. NEURONTIN [Concomitant]
     Active Substance: GABAPENTIN
  20. ULTRAM [Concomitant]
     Active Substance: TRAMADOL HYDROCHLORIDE

REACTIONS (14)
  - Death [Fatal]
  - Dystonia [Not Recovered/Not Resolved]
  - Muscle spasms [Unknown]
  - Pyrexia [Recovered/Resolved]
  - Anaemia [Unknown]
  - Pneumonia aspiration [Unknown]
  - Encephalopathy [Not Recovered/Not Resolved]
  - Parkinson^s disease [Not Recovered/Not Resolved]
  - Respiratory failure [Not Recovered/Not Resolved]
  - Dysphagia [Not Recovered/Not Resolved]
  - Drug withdrawal syndrome [Unknown]
  - Peripheral vascular disorder [Unknown]
  - Leukocytosis [Recovered/Resolved]
  - Product dose omission [Recovered/Resolved]

NARRATIVE: CASE EVENT DATE: 2019
